FAERS Safety Report 9198804 (Version 1)
Quarter: 2013Q1

REPORT INFORMATION
  Report Type: Report from Study
  Country: JP (occurrence: JP)
  Receive Date: 20130329
  Receipt Date: 20130329
  Transmission Date: 20140127
  Serious: Yes (Death, Other)
  Sender: FDA-Public Use
  Company Number: JP-GENZYME-THYM-1002837

PATIENT
  Age: 16 Year
  Sex: Female
  Weight: 51 kg

DRUGS (17)
  1. THYMOGLOBULIN [Suspect]
     Indication: BONE MARROW CONDITIONING REGIMEN
     Dosage: 25 MG, ONCE
     Route: 065
     Dates: start: 20110228, end: 20110228
  2. THYMOGLOBULIN [Suspect]
     Dosage: 50 MG, ONCE
     Route: 065
     Dates: start: 20110301, end: 20110301
  3. THYMOGLOBULIN [Suspect]
     Dosage: 100 MG, ONCE
     Route: 065
     Dates: start: 20110302, end: 20110302
  4. FLUDARA [Suspect]
     Indication: ACUTE MYELOID LEUKAEMIA
     Dosage: UNK
     Route: 065
     Dates: start: 20110225, end: 20110228
  5. ACICLOVIR [Concomitant]
     Indication: PROPHYLAXIS
     Dosage: UNK
     Route: 065
     Dates: start: 20110224, end: 20110408
  6. DALTEPARIN SODIUM [Concomitant]
     Indication: PROPHYLAXIS
     Dosage: UNK
     Route: 065
     Dates: start: 20110224, end: 20110510
  7. NICORANDIL [Concomitant]
     Indication: CARDIAC FAILURE
     Dosage: UNK
     Route: 065
     Dates: start: 20110123, end: 20110510
  8. OLPRINONE HYDROCHLORIDE [Concomitant]
     Indication: CARDIAC FAILURE
     Dosage: UNK
     Route: 065
     Dates: start: 20110126, end: 20110510
  9. BUSULFAN [Concomitant]
     Indication: ACUTE MYELOID LEUKAEMIA
     Dosage: UNK
     Route: 065
     Dates: start: 20110225, end: 20110228
  10. METHYLPREDNISOLONE SODIUM SUCCINATE [Concomitant]
     Indication: ALLERGY PROPHYLAXIS
     Dosage: UNK
     Route: 065
     Dates: start: 20110228, end: 20110302
  11. FUROSEMIDE [Concomitant]
     Indication: CARDIAC FAILURE
     Dosage: UNK
     Route: 065
     Dates: start: 20110301, end: 20110408
  12. TACROLIMUS [Concomitant]
     Indication: PROPHYLAXIS AGAINST GRAFT VERSUS HOST DISEASE
     Dosage: UNK
     Route: 066
     Dates: start: 20110302, end: 20110510
  13. IMMUNOGLOBULIN [Concomitant]
     Indication: INFECTION PROPHYLAXIS
     Dosage: UNK
     Route: 065
     Dates: start: 20110303, end: 20110505
  14. METHOTREXATE [Concomitant]
     Indication: PROPHYLAXIS AGAINST GRAFT VERSUS HOST DISEASE
     Dosage: UNK
     Route: 065
     Dates: start: 20110304
  15. DOPAMINE HYDROCHLORIDE [Concomitant]
     Indication: CARDIAC FAILURE
     Dosage: UNK
     Route: 065
  16. CARPERITIDE [Concomitant]
     Indication: CARDIAC FAILURE
     Dosage: UNK
     Route: 065
     Dates: start: 20110321, end: 20110510
  17. DOBUTAMINE HYDROCHLORIDE [Concomitant]
     Indication: CARDIAC FAILURE
     Dosage: UNK
     Route: 065
     Dates: start: 20110322, end: 20110418

REACTIONS (12)
  - Disseminated intravascular coagulation [Fatal]
  - Ileus paralytic [Fatal]
  - Aspergillus infection [Fatal]
  - Neutropenia [Recovered/Resolved]
  - Cytomegalovirus infection [Fatal]
  - Hypophagia [Recovered/Resolved]
  - Vitamin K deficiency [Recovered/Resolved]
  - Hypokalaemia [Fatal]
  - Hyponatraemia [Fatal]
  - Gastritis [Fatal]
  - Pseudomonal sepsis [Fatal]
  - Sedation [Fatal]
